FAERS Safety Report 8184129-0 (Version None)
Quarter: 2012Q1

REPORT INFORMATION
  Report Type: 
  Country: None (occurrence: None)
  Receive Date: 20120305
  Receipt Date: 20120229
  Transmission Date: 20120608
  Serious: Yes (Hospitalization, Other)
  Sender: FDA-Public Use
  Company Number: US-PFIZER INC-2011181085

PATIENT
  Sex: Female

DRUGS (6)
  1. TRAZODONE [Concomitant]
     Indication: INSOMNIA
  2. CLONAZEPAM [Concomitant]
     Indication: CONVULSION
     Dosage: UNK
     Dates: start: 20040101, end: 20080101
  3. TRAZODONE [Concomitant]
     Indication: ANXIETY
     Dosage: UNK
     Dates: start: 20050101, end: 20080101
  4. DILANTIN [Concomitant]
     Indication: CONVULSION
     Dosage: UNK
     Dates: end: 20080101
  5. CLONAZEPAM [Concomitant]
     Indication: ANXIETY
  6. CHANTIX [Suspect]
     Indication: SMOKING CESSATION THERAPY
     Dosage: 0.5 MG AND 1 MG
     Dates: start: 20080601, end: 20081001

REACTIONS (9)
  - INSOMNIA [None]
  - PNEUMONIA [None]
  - CLOSTRIDIUM DIFFICILE COLITIS [None]
  - CONVULSION [None]
  - ANXIETY [None]
  - DEPRESSION [None]
  - DELIRIUM [None]
  - AGGRESSION [None]
  - SUICIDAL IDEATION [None]
